FAERS Safety Report 5143991-6 (Version None)
Quarter: 2006Q4

REPORT INFORMATION
  Report Type: 
  Country: None (occurrence: None)
  Receive Date: 20061106
  Receipt Date: 20061025
  Transmission Date: 20070319
  Serious: Yes (Other)
  Sender: FDA-Public Use
  Company Number: PHEH2006US13462

PATIENT
  Sex: Female

DRUGS (8)
  1. FORADIL [Suspect]
     Indication: ASTHMA
     Dosage: UNK, BID
     Dates: start: 20020101
  2. ISOPTIN [Concomitant]
     Indication: MITRAL VALVE PROLAPSE
  3. PULMICORT [Concomitant]
     Indication: ASTHMA
  4. MAXAIR [Concomitant]
  5. ESTROGENS [Concomitant]
  6. ACTONEL [Concomitant]
     Indication: OSTEOPOROSIS
  7. KLONOPIN [Concomitant]
  8. REMERON [Concomitant]

REACTIONS (5)
  - CATARACT [None]
  - DEVICE MALFUNCTION [None]
  - LASER THERAPY [None]
  - RETINAL DETACHMENT [None]
  - VISION BLURRED [None]
